FAERS Safety Report 9201485 (Version 2)
Quarter: 2013Q2

REPORT INFORMATION
  Report Type: Spontaneous
  Country: IT (occurrence: IT)
  Receive Date: 20130401
  Receipt Date: 20130403
  Transmission Date: 20140414
  Serious: Yes (Other)
  Sender: FDA-Public Use
  Company Number: IT-PFIZER INC-2013101721

PATIENT
  Age: 36 Year
  Sex: Male

DRUGS (4)
  1. ALPRAZOLAM [Suspect]
     Dosage: 0.5 MG, TOTAL
     Route: 048
     Dates: start: 20130317, end: 20130317
  2. CITALOPRAM HBR [Suspect]
     Dosage: 20 MG, TOTAL
     Route: 048
     Dates: start: 20130317, end: 20130317
  3. SEROQUEL [Suspect]
     Dosage: 50 MG, TOTAL
     Route: 048
     Dates: start: 20130317, end: 20130317
  4. DELORAZEPAM [Suspect]
     Dosage: 0.5 MG, TOTAL
     Route: 048
     Dates: start: 20130317, end: 20130317

REACTIONS (6)
  - Overdose [Recovered/Resolved]
  - Stupor [Recovered/Resolved]
  - Sopor [Recovered/Resolved]
  - Speech disorder [Recovered/Resolved]
  - Intentional self-injury [Recovered/Resolved]
  - Somnolence [Recovered/Resolved]
